FAERS Safety Report 10225165 (Version 1)
Quarter: 2014Q2

REPORT INFORMATION
  Report Type: Spontaneous
  Country: DK (occurrence: FR)
  Receive Date: 20140609
  Receipt Date: 20140609
  Transmission Date: 20141212
  Serious: Yes (Hospitalization)
  Sender: FDA-Public Use
  Company Number: FR-FRI-1000068016

PATIENT
  Age: 96 Year
  Sex: Female

DRUGS (11)
  1. ESCITALOPRAM [Suspect]
     Dosage: 20 MG
     Route: 048
  2. TRANXENE [Suspect]
     Dosage: INTAKE OF 40 MG ONCE
     Route: 048
     Dates: start: 20140325, end: 20140325
  3. DEROXAT [Suspect]
     Dosage: INTAKE OF 20 MG ONCE
     Route: 048
     Dates: start: 20140325, end: 20140325
  4. XANAX [Suspect]
     Dosage: 3 DF
  5. ZYPREXA [Suspect]
     Dosage: INTAKE OF 7.5 MG ONCE
     Route: 048
     Dates: start: 20140325, end: 20140325
  6. TARDYFERON [Concomitant]
     Dosage: 1 DF
     Route: 048
  7. UVEDOSE [Concomitant]
     Dosage: 100,000 IU - 1 AMPOULE / 3 MONTHS
  8. STILNOX [Concomitant]
     Dosage: 0.5 DF
     Route: 048
  9. DAFALGAN [Concomitant]
     Dosage: 3 DF
     Route: 048
  10. MOVICOL [Concomitant]
     Dosage: 2 DF
  11. TANGANIL [Concomitant]
     Dosage: 2 DF
     Route: 048

REACTIONS (4)
  - Somnolence [Recovered/Resolved]
  - Pneumonia aspiration [Recovered/Resolved]
  - Drug interaction [Recovered/Resolved]
  - Accidental exposure to product [Recovered/Resolved]
